FAERS Safety Report 4630363-3 (Version None)
Quarter: 2005Q2

REPORT INFORMATION
  Report Type: 
  Country: None (occurrence: None)
  Receive Date: 20050408
  Receipt Date: 20050218
  Transmission Date: 20051028
  Serious: Yes (Life-Threatening)
  Sender: FDA-Public Use
  Company Number: FR-SP-2005-00450

PATIENT
  Age: 66 Year
  Sex: Male
  Weight: 58 kg

DRUGS (1)
  1. IMMUCYST [Suspect]
     Indication: BLADDER CANCER
     Route: 043
     Dates: start: 20041220

REACTIONS (4)
  - BOVINE TUBERCULOSIS [None]
  - CULTURE URINE POSITIVE [None]
  - DISSEMINATED TUBERCULOSIS [None]
  - MYCOBACTERIA URINE TEST POSITIVE [None]
